FAERS Safety Report 4455201-3 (Version None)
Quarter: 2004Q3

REPORT INFORMATION
  Report Type: 
  Country: None (occurrence: None)
  Receive Date: 20040825
  Receipt Date: 20040524
  Transmission Date: 20050211
  Serious: No
  Sender: FDA-Public Use
  Company Number: 207066

PATIENT
  Sex: Female

DRUGS (1)
  1. RAPTIVA [Suspect]
     Indication: PSORIASIS
     Dosage: 1/WEEK, SUBCUTANEOUS
     Route: 058
     Dates: start: 20040128

REACTIONS (1)
  - RASH [None]
